FAERS Safety Report 18927287 (Version 1)
Quarter: 2021Q1

REPORT INFORMATION
  Report Type: Spontaneous
  Country: US (occurrence: US)
  Receive Date: 20210222
  Receipt Date: 20210222
  Transmission Date: 20210420
  Serious: Yes (Disabling)
  Sender: FDA-Public Use
  Company Number: None

PATIENT
  Age: 59 Year
  Sex: Male

DRUGS (9)
  1. CALCITRIOL 0.25 MCG [Concomitant]
     Active Substance: CALCITRIOL
  2. ASPIRIN. [Concomitant]
     Active Substance: ASPIRIN
  3. SODIUM BICARB 650 MG [Concomitant]
  4. ROSUVASTATIN 40 MG [Concomitant]
     Active Substance: ROSUVASTATIN
  5. LOSARTAN 50 MG [Concomitant]
     Active Substance: LOSARTAN
  6. EZETIMIBE 10 MG [Concomitant]
     Active Substance: EZETIMIBE
  7. VITAMIN D2 1.25 MG [Concomitant]
  8. JULUCA [Suspect]
     Active Substance: DOLUTEGRAVIR SODIUM\RILPIVIRINE HYDROCHLORIDE
     Indication: HIV INFECTION
     Route: 048
     Dates: start: 20200522
  9. METOPROLOL ER 100 MG [Concomitant]

REACTIONS (1)
  - Vitiligo [None]

NARRATIVE: CASE EVENT DATE: 20200707
